FAERS Safety Report 17123218 (Version 1)
Quarter: 2019Q4

REPORT INFORMATION
  Report Type: Spontaneous
  Country: IT (occurrence: IT)
  Receive Date: 20191206
  Receipt Date: 20191206
  Transmission Date: 20200122
  Serious: Yes (Other)
  Sender: FDA-Public Use
  Company Number: IT-BAXTER-2019BAX024764

PATIENT
  Age: 35 Year
  Sex: Female
  Weight: 50 kg

DRUGS (3)
  1. ACCOFIL [Concomitant]
     Active Substance: FILGRASTIM
     Indication: PROPHYLAXIS
     Dosage: 30 MU/0.5 ML SOLUTION FOR INFUSION IN PRE-FILLED
     Route: 058
     Dates: start: 20191012, end: 20191017
  2. HOLOXAN [Suspect]
     Active Substance: IFOSFAMIDE
     Indication: SARCOMA
     Route: 042
     Dates: start: 20191008, end: 20191010
  3. DOXIL [Suspect]
     Active Substance: DOXORUBICIN HYDROCHLORIDE
     Indication: SARCOMA
     Route: 042
     Dates: start: 20191008, end: 20191010

REACTIONS (2)
  - Neutropenia [Recovering/Resolving]
  - Mucosal inflammation [Recovering/Resolving]

NARRATIVE: CASE EVENT DATE: 20191018
